FAERS Safety Report 25498295 (Version 2)
Quarter: 2025Q3

REPORT INFORMATION
  Report Type: Spontaneous
  Country: JP (occurrence: JP)
  Receive Date: 20250701
  Receipt Date: 20250710
  Transmission Date: 20251020
  Serious: Yes (Other)
  Sender: MERCK SHARP & DOHME LLC
  Company Number: JP-009507513-2301578

PATIENT

DRUGS (2)
  1. CUBICIN [Suspect]
     Active Substance: DAPTOMYCIN
     Indication: Sepsis
     Route: 041
  2. LINEZOLID [Concomitant]
     Active Substance: LINEZOLID

REACTIONS (2)
  - Endocarditis [Unknown]
  - Therapeutic response decreased [Unknown]
